FAERS Safety Report 13549713 (Version 1)
Quarter: 2017Q2

REPORT INFORMATION
  Report Type: Spontaneous
  Country: US (occurrence: US)
  Receive Date: 20170516
  Receipt Date: 20170516
  Transmission Date: 20170830
  Serious: No
  Sender: FDA-Public Use
  Company Number: US-TEVA-759733ACC

PATIENT
  Sex: Male

DRUGS (1)
  1. OXYCODONE/APAP [Suspect]
     Active Substance: ACETAMINOPHEN\OXYCODONE HYDROCHLORIDE
     Dosage: DOSE STRENGTH:  10/325MG
     Dates: start: 2015

REACTIONS (4)
  - Rash [Unknown]
  - Anxiety [Unknown]
  - Product taste abnormal [Unknown]
  - Product physical issue [Unknown]
